FAERS Safety Report 20436908 (Version 1)
Quarter: 2022Q1

REPORT INFORMATION
  Report Type: Spontaneous
  Country: US (occurrence: US)
  Receive Date: 20220207
  Receipt Date: 20220207
  Transmission Date: 20220423
  Serious: No
  Sender: FDA-Public Use
  Company Number: US-GLENMARK PHARMACEUTICALS-2022GMK070061

PATIENT

DRUGS (1)
  1. URSODIOL [Suspect]
     Active Substance: URSODIOL
     Indication: Liver disorder
     Dosage: 2500 MILLIGRAM, OD
     Route: 048

REACTIONS (1)
  - Overdose [Unknown]
